FAERS Safety Report 5932975-3 (Version None)
Quarter: 2008Q4

REPORT INFORMATION
  Report Type: 
  Country: None (occurrence: None)
  Receive Date: 20081027
  Receipt Date: 20081027
  Transmission Date: 20090506
  Serious: Yes (Other)
  Sender: FDA-Public Use
  Company Number: None

PATIENT
  Sex: Female
  Weight: 92.5338 kg

DRUGS (1)
  1. CHANTIX [Suspect]
     Indication: SMOKING CESSATION THERAPY
     Dosage: 1 PILL TWICE A DAY PO
     Route: 048
     Dates: start: 20080901, end: 20081001

REACTIONS (3)
  - MUSCLE DISORDER [None]
  - MYALGIA [None]
  - PAIN [None]
